FAERS Safety Report 15764846 (Version 7)
Quarter: 2020Q2

REPORT INFORMATION
  Report Type: Report from Study
  Country: GR (occurrence: GR)
  Receive Date: 20181227
  Receipt Date: 20200502
  Transmission Date: 20200713
  Serious: Yes (Death, Hospitalization)
  Sender: FDA-Public Use
  Company Number: GR-ROCHE-2210099

PATIENT
  Age: 75 Year
  Sex: Female
  Weight: 85 kg

DRUGS (17)
  1. FENISTIL [Concomitant]
     Active Substance: DIMETHINDENE
     Indication: PROPHYLAXIS
     Route: 065
     Dates: start: 20181123, end: 20181123
  2. BLOOD [Concomitant]
     Active Substance: WHOLE BLOOD
     Indication: ANAEMIA
     Route: 065
     Dates: start: 20181212, end: 20181212
  3. RIVAROXABAN [Suspect]
     Active Substance: RIVAROXABAN
     Indication: ANTICOAGULANT THERAPY
     Route: 065
  4. BEVACIZUMAB. [Suspect]
     Active Substance: BEVACIZUMAB
     Indication: OVARIAN CANCER
     Dosage: ON 12/OCT/2018, SHE RECEIVEDE MOST RECENT DOSE OF BLINDED ATEZOLIZUMAB PRIOR TO ONSET OF 1ST OCCURAN
     Route: 042
     Dates: start: 20181012
  5. PACLITAXEL. [Suspect]
     Active Substance: PACLITAXEL
     Indication: OVARIAN CANCER
     Dosage: ON 12/OCT/2018, SHE RECEIVED THE MOST RECENT DOSE OF PACLITAXEL (269.3 MG) ONSET OF 1ST OCCURANCE OF
     Route: 042
     Dates: start: 20180921
  6. CARBOPLATIN. [Suspect]
     Active Substance: CARBOPLATIN
     Indication: OVARIAN CANCER
     Dosage: AT A DOSE TO ACHIEVE A TARGET AREA UNDER THE CURVE (AUC) OF 6 MILLIGRAMS PER MILLILITER*MINUTE (MG/M
     Route: 042
     Dates: start: 20180921
  7. DEXAMETHASONE. [Concomitant]
     Active Substance: DEXAMETHASONE
     Indication: PROPHYLAXIS
     Route: 048
     Dates: start: 20181122, end: 20181122
  8. DEXAMETHASONE. [Concomitant]
     Active Substance: DEXAMETHASONE
     Route: 042
     Dates: start: 20181012, end: 20181012
  9. FENISTIL [Concomitant]
     Active Substance: DIMETHINDENE
     Route: 065
     Dates: start: 20181012, end: 20181012
  10. CONCOR [Concomitant]
     Active Substance: BISOPROLOL FUMARATE
     Indication: HYPERTENSION
  11. ATEZOLIZUMAB. [Suspect]
     Active Substance: ATEZOLIZUMAB
     Indication: OVARIAN CANCER
     Dosage: ON 12/OCT/2018, SHE RECEIVEDE MOST RECENT DOSE OF BLINDED ATEZOLIZUMAB PRIOR TO ONSET OF 1ST OCCURAN
     Route: 042
     Dates: start: 20180921
  12. XARELTO [Concomitant]
     Active Substance: RIVAROXABAN
     Indication: ATRIAL FIBRILLATION
  13. DEXAMETHASONE. [Concomitant]
     Active Substance: DEXAMETHASONE
     Route: 042
     Dates: start: 20181123, end: 20181123
  14. DEXAMETHASONE. [Concomitant]
     Active Substance: DEXAMETHASONE
     Route: 048
     Dates: start: 20181011, end: 20181011
  15. ZANTAC [Concomitant]
     Active Substance: RANITIDINE HYDROCHLORIDE
     Indication: PROPHYLAXIS
     Route: 065
     Dates: start: 20181012, end: 20181012
  16. ZANTAC [Concomitant]
     Active Substance: RANITIDINE HYDROCHLORIDE
     Route: 065
     Dates: start: 20181123, end: 20181123
  17. T4 [Concomitant]
     Active Substance: LEVOTHYROXINE
     Indication: HYPOTHYROIDISM
     Route: 065
     Dates: end: 20181123

REACTIONS (4)
  - Intestinal perforation [Fatal]
  - Anal haemorrhage [Not Recovered/Not Resolved]
  - Rash papular [Not Recovered/Not Resolved]
  - Anal haemorrhage [Recovered/Resolved]

NARRATIVE: CASE EVENT DATE: 20181022
